FAERS Safety Report 4353384-7 (Version None)
Quarter: 2004Q2

REPORT INFORMATION
  Report Type: 
  Country: None (occurrence: None)
  Receive Date: 20040430
  Receipt Date: 20040420
  Transmission Date: 20050107
  Serious: Yes (Other)
  Sender: FDA-Public Use
  Company Number: 2004027040

PATIENT
  Sex: Female
  Weight: 64.4108 kg

DRUGS (9)
  1. NEURONTIN [Suspect]
     Indication: NEURALGIA
     Dosage: 1800 MG, BID, ORAL
     Route: 048
  2. TERIPARATIDE (TERIPARATIDE) [Suspect]
     Indication: OSTEOPOROSIS
     Dosage: DAILY
     Dates: start: 20030501
  3. ANAESTHETIC S(ANAESTHETICS) [Suspect]
     Indication: ANAESTHESIA
  4. MORPHINE [Suspect]
     Indication: ILL-DEFINED DISORDER
  5. ENALAPRIL MALEATE [Concomitant]
  6. NIFEDIPINE [Concomitant]
  7. ONE-A-DAY (ASCORBIC ACID, CYANOCOBALAMIN, ERGOCALCIFEROL, NICOTINAMIDE [Concomitant]
  8. CHLORPHENAMINE MALEATE (CHLORPHENAMINE MALEATE) [Concomitant]
  9. CALCIUM MAGNESIUM ZINC (CALCIUM, MAGNESIUM, ZINC) [Concomitant]

REACTIONS (4)
  - BLOOD CALCIUM INCREASED [None]
  - BONE FORMATION INCREASED [None]
  - DELUSION [None]
  - SPINAL OPERATION [None]
